FAERS Safety Report 21931372 (Version 1)
Quarter: 2023Q1

REPORT INFORMATION
  Report Type: Spontaneous
  Country: US (occurrence: US)
  Receive Date: 20230131
  Receipt Date: 20230131
  Transmission Date: 20230418
  Serious: No
  Sender: FDA-Public Use
  Company Number: US-CIPLA LTD.-2022US07439

PATIENT

DRUGS (2)
  1. ALBUTEROL [Suspect]
     Active Substance: ALBUTEROL
     Indication: Cough
     Dosage: 0.18 MILLIGRAM, PRN (2 PUFFS EVERY 4 HOURS AS NEEDED)
     Dates: start: 20221129
  2. MIRALAX [Concomitant]
     Active Substance: POLYETHYLENE GLYCOL 3350
     Indication: Constipation
     Dosage: 8.5 MILLIGRAM, BID
     Route: 065
     Dates: start: 2021

REACTIONS (6)
  - Off label use [Unknown]
  - Product use issue [Unknown]
  - Wrong technique in device usage process [Unknown]
  - Device ineffective [Unknown]
  - Device delivery system issue [Unknown]
  - Drug dose omission by device [Unknown]

NARRATIVE: CASE EVENT DATE: 20220101
